FAERS Safety Report 13746589 (Version 3)
Quarter: 2017Q3

REPORT INFORMATION
  Report Type: Report from Study
  Country: TW (occurrence: TW)
  Receive Date: 20170712
  Receipt Date: 20170718
  Transmission Date: 20171127
  Serious: Yes (Death)
  Sender: FDA-Public Use
  Company Number: TW-PFIZER INC-2017298781

PATIENT
  Age: 56 Year
  Sex: Male

DRUGS (1)
  1. XALKORI [Suspect]
     Active Substance: CRIZOTINIB
     Indication: NON-SMALL CELL LUNG CANCER
     Dosage: 250 MG, BID
     Route: 048
     Dates: start: 20160103, end: 20160903

REACTIONS (5)
  - Hepatic failure [Fatal]
  - Vomiting [Fatal]
  - Nausea [Fatal]
  - Acute hepatitis B [Fatal]
  - Diarrhoea [Fatal]
